FAERS Safety Report 21398283 (Version 1)
Quarter: 2022Q3

REPORT INFORMATION
  Report Type: Spontaneous
  Country: US (occurrence: US)
  Receive Date: 20220930
  Receipt Date: 20220930
  Transmission Date: 20221026
  Serious: No
  Sender: FDA-Public Use
  Company Number: US-TAKEDA-2022TUS069067

PATIENT
  Sex: Female

DRUGS (2)
  1. GAMMAGARD LIQUID [Suspect]
     Active Substance: HUMAN IMMUNOGLOBULIN G
     Indication: Myasthenic syndrome
     Dosage: 35 GRAM
     Route: 042
     Dates: start: 2018
  2. GAMMAGARD LIQUID [Suspect]
     Active Substance: HUMAN IMMUNOGLOBULIN G
     Dosage: 2 DOSAGE FORM, 2/WEEK
     Route: 042

REACTIONS (3)
  - Malaise [Unknown]
  - Device issue [Unknown]
  - Product use in unapproved indication [Unknown]
